FAERS Safety Report 10199950 (Version 1)
Quarter: 2014Q2

REPORT INFORMATION
  Report Type: Spontaneous
  Country: US (occurrence: US)
  Receive Date: 20140527
  Receipt Date: 20140527
  Transmission Date: 20141212
  Serious: No
  Sender: FDA-Public Use
  Company Number: US-NOVEN-14US008764

PATIENT
  Age: 47 Year
  Sex: Female

DRUGS (1)
  1. DAYTRANA [Suspect]
     Indication: ATTENTION DEFICIT/HYPERACTIVITY DISORDER
     Route: 062

REACTIONS (3)
  - Off label use [Recovered/Resolved]
  - Drug prescribing error [Recovered/Resolved]
  - No adverse event [Recovered/Resolved]
